FAERS Safety Report 7595656-9 (Version None)
Quarter: 2011Q3

REPORT INFORMATION
  Report Type: 
  Country: None (occurrence: None)
  Receive Date: 20110707
  Receipt Date: 20110630
  Transmission Date: 20111222
  Serious: Yes (Other)
  Sender: FDA-Public Use
  Company Number: GB-MERCK-1107GBR00009

PATIENT
  Age: 8 Year

DRUGS (2)
  1. SINGULAIR [Suspect]
     Route: 048
  2. SINGULAIR [Suspect]
     Route: 048
     Dates: end: 20100101

REACTIONS (1)
  - PERSONALITY DISORDER [None]
